FAERS Safety Report 6290358-3 (Version None)
Quarter: 2009Q3

REPORT INFORMATION
  Report Type: 
  Country: None (occurrence: None)
  Receive Date: 20090730
  Receipt Date: 20090306
  Transmission Date: 20100115
  Serious: No
  Sender: FDA-Public Use
  Company Number: US-BRISTOL-MYERS SQUIBB COMPANY-14536775

PATIENT
  Sex: Female

DRUGS (2)
  1. COUMADIN [Suspect]
     Indication: THROMBOSIS
  2. COUMADIN [Suspect]
     Indication: PULMONARY THROMBOSIS

REACTIONS (2)
  - BLOOD BLISTER [None]
  - SKIN DISCOLOURATION [None]
